FAERS Safety Report 8659799 (Version 6)
Quarter: 2012Q4

REPORT INFORMATION
  Report Type: 
  Country: JP (occurrence: JP)
  Receive Date: 20120711
  Receipt Date: 20121127
  Transmission Date: 20130627
  Serious: Yes (Hospitalization)
  Sender: FDA-Public Use
  Company Number: JP-JNJFOC-20120702244

PATIENT
  Age: 76 Year
  Sex: Female
  Weight: 46 kg

DRUGS (6)
  1. SIMPONI [Suspect]
     Indication: RHEUMATOID ARTHRITIS
     Route: 058
     Dates: start: 20111214
  2. PREDNISOLONE [Suspect]
     Indication: RHEUMATOID ARTHRITIS
     Route: 048
     Dates: start: 20111214, end: 20120628
  3. PREDNISOLONE [Suspect]
     Indication: RHEUMATOID ARTHRITIS
     Route: 048
     Dates: start: 20120629, end: 20120809
  4. METHOTREXATE [Suspect]
     Indication: RHEUMATOID ARTHRITIS
     Route: 048
     Dates: start: 20111214, end: 20120629
  5. PREDONINE [Concomitant]
     Indication: RHEUMATOID ARTHRITIS
     Route: 048
     Dates: start: 20120629, end: 20120809
  6. SIMPONI [Suspect]
     Indication: RHEUMATOID ARTHRITIS
     Dosage: third dose of golimumab
     Route: 058
     Dates: start: 20120208, end: 20120208

REACTIONS (1)
  - Squamous cell carcinoma of the oral cavity [Recovering/Resolving]
